FAERS Safety Report 7086307-0 (Version None)
Quarter: 2010Q4

REPORT INFORMATION
  Report Type: 
  Country: None (occurrence: None)
  Receive Date: 20101105
  Receipt Date: 20101101
  Transmission Date: 20110411
  Serious: Yes (Other)
  Sender: FDA-Public Use
  Company Number: DK-BRACCO-000060

PATIENT
  Sex: Female

DRUGS (2)
  1. CONTRAST MEDIA (PARAMAGNETIC) [Suspect]
     Indication: SCAN WITH CONTRAST
  2. OMNISCAN [Suspect]

REACTIONS (1)
  - NEPHROGENIC SYSTEMIC FIBROSIS [None]
